FAERS Safety Report 4298980-0 (Version None)
Quarter: 2004Q1

REPORT INFORMATION
  Report Type: 
  Country: None (occurrence: None)
  Receive Date: 20040217
  Receipt Date: 20040205
  Transmission Date: 20041129
  Serious: Yes (Other)
  Sender: FDA-Public Use
  Company Number: HQWYE838305FEB04

PATIENT
  Age: 76 Year
  Sex: Male

DRUGS (12)
  1. CORDARONE [Suspect]
     Indication: VENTRICULAR TACHYCARDIA
     Dosage: 900 MG 1X PER 1 DAY
     Route: 042
     Dates: start: 20031215, end: 20031217
  2. ALLOPURINOL [Concomitant]
  3. RAMIPRIL [Concomitant]
  4. PRAVASTATIN [Concomitant]
  5. ASPIRIN [Concomitant]
  6. BISOPROLOL [Concomitant]
  7. CLOPIDOGREL BISULFATE [Concomitant]
  8. ZIMOVANE (ZOPICLONE) [Concomitant]
  9. BUMETANIDE [Concomitant]
  10. ACETYLCYSTEINE [Concomitant]
  11. MIDAZOLAM HCL [Concomitant]
  12. FLUMAZENIL [Concomitant]

REACTIONS (1)
  - HEPATITIS [None]
